FAERS Safety Report 15951568 (Version 1)
Quarter: 2019Q1

REPORT INFORMATION
  Report Type: Spontaneous
  Country: US (occurrence: US)
  Receive Date: 20190212
  Receipt Date: 20190212
  Transmission Date: 20190417
  Serious: No
  Sender: FDA-Public Use
  Company Number: US-009507513-1902USA000592

PATIENT
  Age: 39 Year
  Sex: Female

DRUGS (1)
  1. FOLLISTIM AQ [Suspect]
     Active Substance: FOLLITROPIN
     Indication: INFERTILITY
     Dosage: 300 UNITS, QD FOR 10-14 DAYS
     Route: 058
     Dates: start: 20190123, end: 20190202

REACTIONS (1)
  - Cough [Unknown]
